FAERS Safety Report 15246557 (Version 2)
Quarter: 2018Q3

REPORT INFORMATION
  Report Type: Spontaneous
  Country: US (occurrence: US)
  Receive Date: 20180806
  Receipt Date: 20180904
  Transmission Date: 20181010
  Serious: Yes (Other)
  Sender: FDA-Public Use
  Company Number: US-RADIUS HEALTH, INC.-2018US001685

PATIENT
  Sex: Female

DRUGS (1)
  1. TYMLOS [Suspect]
     Active Substance: ABALOPARATIDE
     Indication: OSTEOPOROSIS POSTMENOPAUSAL
     Dosage: 80 MCG, UNK
     Route: 058
     Dates: start: 201805

REACTIONS (4)
  - Spinal fracture [Recovering/Resolving]
  - Abdominal discomfort [Not Recovered/Not Resolved]
  - Spinal operation [Recovering/Resolving]
  - Dizziness [Not Recovered/Not Resolved]
